FAERS Safety Report 15263299 (Version 2)
Quarter: 2018Q3

REPORT INFORMATION
  Report Type: Spontaneous
  Country: RO (occurrence: RO)
  Receive Date: 20180810
  Receipt Date: 20180820
  Transmission Date: 20181010
  Serious: Yes (Death, Hospitalization)
  Sender: FDA-Public Use
  Company Number: RO-STRIDES ARCOLAB LIMITED-2018SP006615

PATIENT

DRUGS (5)
  1. IRON [Concomitant]
     Active Substance: IRON
     Indication: PERITONEAL DIALYSIS
     Dosage: 20 MG/DAY
     Route: 065
  2. CALCITRIOL. [Suspect]
     Active Substance: CALCITRIOL
     Indication: PERITONEAL DIALYSIS
     Dosage: 0.5 MCG, QD
     Route: 065
  3. CALCIUM CARBONATE. [Suspect]
     Active Substance: CALCIUM CARBONATE
     Indication: PERITONEAL DIALYSIS
     Dosage: 1000 MG, TID
     Route: 065
  4. FOLIC ACID. [Concomitant]
     Active Substance: FOLIC ACID
     Indication: PERITONEAL DIALYSIS
     Dosage: 5 MG, QD
     Route: 065
  5. ERYTHROPOIETIN [Concomitant]
     Active Substance: ERYTHROPOIETIN
     Indication: PERITONEAL DIALYSIS
     Dosage: UNK, 1000 UI, TID
     Route: 065

REACTIONS (24)
  - Tachypnoea [Unknown]
  - Cough [Unknown]
  - Seizure [Unknown]
  - Calcification of muscle [Unknown]
  - Cardiac failure congestive [Unknown]
  - Hepatojugular reflux [Unknown]
  - Hepatomegaly [Unknown]
  - Wheezing [Unknown]
  - Hypokinesia [Unknown]
  - Hypoproteinaemia [Unknown]
  - Anaemia [Unknown]
  - Calciphylaxis [Fatal]
  - Malaise [Unknown]
  - Hyperphosphataemia [Unknown]
  - Hypoxia [Unknown]
  - Malnutrition [Unknown]
  - Cardio-respiratory arrest [Fatal]
  - Nodule [Unknown]
  - Chest discomfort [Unknown]
  - Irritability [Unknown]
  - Weight decreased [Unknown]
  - Respiratory distress [Unknown]
  - Respiratory failure [Unknown]
  - Dyspnoea [Unknown]
